FAERS Safety Report 6167779-2 (Version None)
Quarter: 2009Q2

REPORT INFORMATION
  Report Type: 
  Country: None (occurrence: None)
  Receive Date: 20090427
  Receipt Date: 20090420
  Transmission Date: 20091009
  Serious: Yes (Hospitalization)
  Sender: FDA-Public Use
  Company Number: US-JNJFOC-20090400765

PATIENT
  Sex: Female
  Weight: 58.51 kg

DRUGS (10)
  1. DOXIL [Suspect]
     Route: 042
  2. DOXIL [Suspect]
     Route: 042
  3. DOXIL [Suspect]
     Dosage: CYCLE 3
     Route: 042
  4. DOXIL [Suspect]
     Indication: BREAST CANCER
     Dosage: CYCLES 1 AND 2
     Route: 042
  5. FUROSEMIDE [Concomitant]
     Route: 065
  6. FLEXERIL [Concomitant]
     Indication: MUSCLE SPASMS
     Route: 065
  7. FLEXERIL [Concomitant]
     Indication: PAIN
     Route: 065
  8. PERCOCET [Concomitant]
     Indication: PAIN
     Route: 065
  9. ONDANSETRON [Concomitant]
     Indication: VOMITING
     Route: 065
  10. ONDANSETRON [Concomitant]
     Indication: NAUSEA
     Route: 065

REACTIONS (1)
  - THROMBOTIC THROMBOCYTOPENIC PURPURA [None]
